FAERS Safety Report 18773037 (Version 1)
Quarter: 2021Q1

REPORT INFORMATION
  Report Type: Other
  Country: CA (occurrence: CA)
  Receive Date: 20210122
  Receipt Date: 20210122
  Transmission Date: 20210419
  Serious: Yes (Hospitalization)
  Sender: FDA-Public Use
  Company Number: CA-ROCHE-2752173

PATIENT
  Sex: Male

DRUGS (30)
  1. AMLODIPINE [Concomitant]
     Active Substance: AMLODIPINE BESYLATE
  2. ISOSORBIDE. [Concomitant]
     Active Substance: ISOSORBIDE
  3. METOPROLOL. [Concomitant]
     Active Substance: METOPROLOL
  4. RITUXAN [Suspect]
     Active Substance: RITUXIMAB
     Indication: ANTIPHOSPHOLIPID SYNDROME
     Dosage: NO PIRS AVAILABLE
     Route: 042
     Dates: start: 20200125
  5. CALCARB [Concomitant]
  6. CALCIUM [Concomitant]
     Active Substance: CALCIUM
  7. TINZAPARIN [Concomitant]
     Active Substance: TINZAPARIN
  8. TYLENOL [Concomitant]
     Active Substance: ACETAMINOPHEN
     Indication: PREMEDICATION
     Route: 048
     Dates: start: 20200915
  9. RITUXAN [Suspect]
     Active Substance: RITUXIMAB
     Dosage: DAY 1,15
     Route: 042
     Dates: start: 20200915
  10. CLONIDINE. [Concomitant]
     Active Substance: CLONIDINE
  11. HYDROQUINONE. [Concomitant]
     Active Substance: HYDROQUINONE
  12. ADVAIR HFA [Concomitant]
     Active Substance: FLUTICASONE PROPIONATE\SALMETEROL XINAFOATE
  13. CARVEDILOL. [Concomitant]
     Active Substance: CARVEDILOL
  14. FLORINEF ACETATE [Concomitant]
     Active Substance: FLUDROCORTISONE ACETATE
  15. HYDROXYZINE [Concomitant]
     Active Substance: HYDROXYZINE HYDROCHLORIDE
  16. INNOHEP [Concomitant]
     Active Substance: TINZAPARIN SODIUM
  17. MELATONIN [Concomitant]
     Active Substance: MELATONIN
  18. PANTOPRAZOLE [Concomitant]
     Active Substance: PANTOPRAZOLE
  19. SODIUM BICARBONATE. [Concomitant]
     Active Substance: SODIUM BICARBONATE
  20. INSULIN [Concomitant]
     Active Substance: INSULIN NOS
  21. SOLU?MEDROL [Concomitant]
     Active Substance: METHYLPREDNISOLONE SODIUM SUCCINATE
     Indication: PREMEDICATION
     Route: 042
     Dates: start: 20200915
  22. CLOPIDOGREL [Concomitant]
     Active Substance: CLOPIDOGREL BISULFATE
  23. PREDNISONE. [Concomitant]
     Active Substance: PREDNISONE
  24. ACETYLSALICYLIC ACID [Concomitant]
     Active Substance: ASPIRIN
  25. ALENDRONATE [Concomitant]
     Active Substance: ALENDRONATE SODIUM
  26. ATORVASTATIN [Concomitant]
     Active Substance: ATORVASTATIN
  27. FUROSEMIDE. [Concomitant]
     Active Substance: FUROSEMIDE
  28. BENADRYL [Concomitant]
     Active Substance: DIPHENHYDRAMINE HYDROCHLORIDE
     Indication: PREMEDICATION
     Route: 048
     Dates: start: 20200915
  29. LASIX [Concomitant]
     Active Substance: FUROSEMIDE
  30. PLASMA [Concomitant]
     Active Substance: HUMAN PLASMA

REACTIONS (5)
  - Cardiac disorder [Not Recovered/Not Resolved]
  - Renal disorder [Not Recovered/Not Resolved]
  - Stomatitis [Not Recovered/Not Resolved]
  - Back pain [Not Recovered/Not Resolved]
  - Fluid retention [Not Recovered/Not Resolved]
